FAERS Safety Report 7764277-7 (Version None)
Quarter: 2011Q3

REPORT INFORMATION
  Report Type: 
  Country: None (occurrence: None)
  Receive Date: 20110921
  Receipt Date: 20110909
  Transmission Date: 20111222
  Serious: Yes (Disabling, Other)
  Sender: FDA-Public Use
  Company Number: US-ELI_LILLY_AND_COMPANY-US201106005775

PATIENT
  Age: 85 Year
  Sex: Female

DRUGS (4)
  1. FORTEO [Suspect]
     Dosage: 20 UG, QD
  2. VENLAFAXINE HYDROCHLORIDE [Concomitant]
  3. FORTEO [Suspect]
     Indication: OSTEOPOROSIS
     Dosage: 20 UG, QD
  4. VITAMIN TAB [Concomitant]

REACTIONS (10)
  - FATIGUE [None]
  - WEIGHT DECREASED [None]
  - STRESS [None]
  - ABDOMINAL PAIN UPPER [None]
  - INTENTIONAL DRUG MISUSE [None]
  - MYOCARDIAL INFARCTION [None]
  - DEAFNESS UNILATERAL [None]
  - DIABETES MELLITUS [None]
  - ANXIETY [None]
  - MALAISE [None]
